FAERS Safety Report 18741619 (Version 3)
Quarter: 2021Q1

REPORT INFORMATION
  Report Type: Spontaneous
  Country: RU (occurrence: RU)
  Receive Date: 20210114
  Receipt Date: 20210127
  Transmission Date: 20210419
  Serious: Yes (Other)
  Sender: FDA-Public Use
  Company Number: RU-AMERICAN REGENT INC-2021000123

PATIENT
  Age: 38 Year
  Sex: Female

DRUGS (3)
  1. FERINJECT [Suspect]
     Active Substance: FERRIC CARBOXYMALTOSE
     Indication: ANAEMIA
     Dosage: UNK
     Route: 042
     Dates: start: 2018, end: 2018
  2. MALTOFER                           /00023548/ [Suspect]
     Active Substance: IRON POLYMALTOSE
     Indication: ANAEMIA
     Dosage: UNK
     Route: 048
     Dates: start: 2018
  3. VENOFER [Suspect]
     Active Substance: IRON SUCROSE
     Indication: ANAEMIA
     Dosage: UNK
     Route: 042
     Dates: start: 2018

REACTIONS (5)
  - Maternal exposure during pregnancy [Unknown]
  - Foetal distress syndrome [Unknown]
  - Premature delivery [Unknown]
  - Polyhydramnios [Unknown]
  - Placental insufficiency [Unknown]

NARRATIVE: CASE EVENT DATE: 2018
